FAERS Safety Report 11128240 (Version 1)
Quarter: 2015Q2

REPORT INFORMATION
  Report Type: Spontaneous
  Country: US (occurrence: None)
  Receive Date: 20150520
  Receipt Date: 20150520
  Transmission Date: 20150821
  Serious: Yes (Disabling)
  Sender: FDA-Public Use
  Company Number: None

PATIENT
  Age: 68 Year
  Sex: Female
  Weight: 79.38 kg

DRUGS (1)
  1. LEFLUNOMIDE 20 HERITAGE [Suspect]
     Active Substance: LEFLUNOMIDE
     Indication: SERONEGATIVE ARTHRITIS
     Route: 048
     Dates: start: 20150315, end: 20150514

REACTIONS (4)
  - Dyspnoea [None]
  - Heart rate increased [None]
  - Abdominal distension [None]
  - Hypertension [None]

NARRATIVE: CASE EVENT DATE: 20150514
